FAERS Safety Report 6400945-7 (Version None)
Quarter: 2009Q4

REPORT INFORMATION
  Report Type: 
  Country: None (occurrence: None)
  Receive Date: 20091009
  Receipt Date: 20091003
  Transmission Date: 20100525
  Serious: Yes (Hospitalization)
  Sender: FDA-Public Use
  Company Number: SPV1-2009-01952

PATIENT
  Age: 42 Year
  Sex: Male

DRUGS (1)
  1. LIALDA [Suspect]
     Indication: COLITIS ULCERATIVE
     Dosage: 1.2 G, 1X/D:QD, ORAL
     Route: 048
     Dates: start: 20090101, end: 20090101

REACTIONS (1)
  - HAEMATOCHEZIA [None]
